FAERS Safety Report 15278634 (Version 1)
Quarter: 2018Q4

REPORT INFORMATION
  Report Type: Spontaneous
  Country: ES (occurrence: ES)
  Receive Date: 20180815
  Receipt Date: 20180815
  Transmission Date: 20190204
  Serious: Yes (Hospitalization)
  Sender: FDA-Public Use
  Company Number: ES-TEVA-2018-ES-940716

PATIENT
  Age: 46 Year
  Sex: Female

DRUGS (3)
  1. ZONISAMIDA (7004A) [Suspect]
     Active Substance: ZONISAMIDE
     Indication: ADJUSTMENT DISORDER WITH MIXED ANXIETY AND DEPRESSED MOOD
     Dosage: 200 MILLIGRAM DAILY;
     Route: 048
     Dates: start: 20170712, end: 20180416
  2. OLANZAPINA NORMON 5 MG COMPRIMIDOS BUCODISPERSABLES EFG , 28 COMPRIMID [Concomitant]
     Indication: ADJUSTMENT DISORDER WITH MIXED ANXIETY AND DEPRESSED MOOD
     Dosage: 10 MILLIGRAM DAILY;
     Route: 048
     Dates: start: 20180220
  3. TRAMADOL + PARACETAMOL [Concomitant]
     Active Substance: ACETAMINOPHEN\TRAMADOL
     Indication: PAIN
     Route: 048
     Dates: start: 20180326

REACTIONS (2)
  - Electrocardiogram QT prolonged [Recovered/Resolved]
  - Hypokalaemia [Recovered/Resolved]

NARRATIVE: CASE EVENT DATE: 20180413
